FAERS Safety Report 6603332-1 (Version None)
Quarter: 2010Q1

REPORT INFORMATION
  Report Type: 
  Country: None (occurrence: None)
  Receive Date: 20100226
  Receipt Date: 20090130
  Transmission Date: 20100710
  Serious: Yes (Hospitalization)
  Sender: FDA-Public Use
  Company Number: A0766142A

PATIENT
  Age: 80 Year
  Sex: Male

DRUGS (6)
  1. VALTREX [Suspect]
     Indication: HERPES ZOSTER
     Dosage: 1G PER DAY
     Route: 048
     Dates: start: 20050101
  2. LIPITOR [Concomitant]
  3. COZAAR [Concomitant]
  4. ATENOLOL [Concomitant]
  5. FOLIC ACID [Concomitant]
  6. FLOMAX [Concomitant]

REACTIONS (1)
  - PLATELET COUNT DECREASED [None]
